FAERS Safety Report 10982944 (Version 1)
Quarter: 2015Q1

REPORT INFORMATION
  Report Type: Spontaneous
  Country: US (occurrence: None)
  Receive Date: 20150302
  Receipt Date: 20150302
  Transmission Date: 20150721
  Serious: Yes (Other)
  Sender: FDA-Public Use
  Company Number: M2014-026

PATIENT
  Age: 78 Year
  Sex: Female

DRUGS (7)
  1. ALLERGENIC EXTRACT- CANDIDA. [Suspect]
     Active Substance: ALLERGENIC EXTRACT- CANDIDA
  2. ALTERNARIA TENUIS ALTERNATA [Suspect]
     Active Substance: ALTERNARIA ALTERNATA
  3. HELMINTHOSPORIUM INTERSEMINATUM [Suspect]
     Active Substance: DENDRYPHIELLA VINOSA
  4. ASPERGILLUS FUMIGATUS. [Suspect]
     Active Substance: ASPERGILLUS FUMIGATUS
  5. PULLULARIA PULLULANS [Suspect]
     Active Substance: AUREOBASIDIUM PULLULANS VAR. PULLUTANS
  6. HORMODENDRUM CLADOSPORIOIDES [Suspect]
     Active Substance: CLADOSPORIUM CLADOSPORIOIDES
     Indication: IMMUNE TOLERANCE INDUCTION
     Dates: start: 20141008
  7. MOLDS, PENICILLIUM MIX [Suspect]
     Active Substance: CLONOSTACHYS ROSEA F. ROSEA\PENICILLIUM CHRYSOGENUM VAR. CHRYSOGENUM\PENICILLIUM DIGITATUM\PENICILLIUM EXPANSUM

REACTIONS (1)
  - Swelling [None]

NARRATIVE: CASE EVENT DATE: 20141009
